FAERS Safety Report 18078792 (Version 4)
Quarter: 2020Q3

REPORT INFORMATION
  Report Type: Spontaneous
  Country: US (occurrence: US)
  Receive Date: 20200728
  Receipt Date: 20200903
  Transmission Date: 20201103
  Serious: No
  Sender: FDA-Public Use
  Company Number: US-SA-2020SA191611

PATIENT

DRUGS (1)
  1. NASACORT ALLERGY 24HR [Suspect]
     Active Substance: TRIAMCINOLONE ACETONIDE
     Indication: SEASONAL ALLERGY
     Dosage: 55 UG, QD (ONE SPRAY)
     Route: 065

REACTIONS (8)
  - Product use issue [Unknown]
  - Chest pain [Unknown]
  - Product label confusion [Unknown]
  - Disease recurrence [Unknown]
  - Palpitations [Unknown]
  - Cardiac disorder [Unknown]
  - Therapy cessation [Unknown]
  - Drug ineffective [Unknown]
